FAERS Safety Report 9651958 (Version 2)
Quarter: 2013Q4

REPORT INFORMATION
  Report Type: Spontaneous
  Country: US (occurrence: US)
  Receive Date: 20131029
  Receipt Date: 20131029
  Transmission Date: 20140711
  Serious: No
  Sender: FDA-Public Use
  Company Number: US-ENDO PHARMACEUTICALS INC.-PMVC20120001

PATIENT
  Age: 53 Year
  Sex: Male

DRUGS (2)
  1. PROMETHAZINE VC WITH CODEINE SYRUP [Suspect]
     Indication: COUGH
     Dosage: UNK
     Route: 048
     Dates: start: 2012, end: 2012
  2. PROMETHAZINE VC WITH CODEINE SYRUP [Suspect]
     Dosage: UNK
     Route: 048
     Dates: start: 2012

REACTIONS (1)
  - Agitation [Unknown]
